FAERS Safety Report 4914081-X (Version None)
Quarter: 2006Q1

REPORT INFORMATION
  Report Type: 
  Country: None (occurrence: None)
  Receive Date: 20060210
  Receipt Date: 20060206
  Transmission Date: 20060701
  Serious: Yes (Hospitalization)
  Sender: FDA-Public Use
  Company Number: A0568190A

PATIENT
  Sex: Male
  Weight: 60.782 kg

DRUGS (1)
  1. PAXIL [Suspect]
     Indication: DEPRESSION
     Dosage: ORAL
     Route: 048
     Dates: start: 20021114, end: 20030801

REACTIONS (30)
  - ADJUSTMENT DISORDER [None]
  - ANXIETY [None]
  - ANXIETY DISORDER [None]
  - APHAGIA [None]
  - ASPIRATION [None]
  - CHEST DISCOMFORT [None]
  - CHILD ABUSE [None]
  - DEPRESSION [None]
  - DRUG WITHDRAWAL SYNDROME [None]
  - DYSPHAGIA [None]
  - DYSPHONIA [None]
  - HEART RATE DECREASED [None]
  - IMPULSIVE BEHAVIOUR [None]
  - INTENTIONAL SELF-INJURY [None]
  - LACERATION [None]
  - LARYNGEAL OEDEMA [None]
  - LARYNGITIS [None]
  - LOSS OF CONSCIOUSNESS [None]
  - MOOD SWINGS [None]
  - OBSTRUCTIVE AIRWAYS DISORDER [None]
  - OPEN WOUND [None]
  - PAIN [None]
  - RHONCHI [None]
  - RIB FRACTURE [None]
  - SCAR [None]
  - SLEEP DISORDER [None]
  - SUICIDAL IDEATION [None]
  - SUICIDE ATTEMPT [None]
  - VOCAL CORD PARALYSIS [None]
  - VOCAL CORD POLYP [None]
